FAERS Safety Report 4272633-7 (Version None)
Quarter: 2004Q1

REPORT INFORMATION
  Report Type: 
  Country: None (occurrence: None)
  Receive Date: 20040114
  Receipt Date: 20040114
  Transmission Date: 20041129
  Serious: Yes (Other)
  Sender: FDA-Public Use
  Company Number: None

PATIENT
  Sex: Male
  Weight: 14.0615 kg

DRUGS (2)
  1. CLINDAMYCIN HCL [Suspect]
     Dosage: 150 MG Q 8HOURS
     Dates: start: 20041228, end: 20040111
  2. ROCEPHIN [Suspect]
     Dosage: 650 MG QDAY
     Dates: start: 20041228, end: 20040111

REACTIONS (1)
  - RASH [None]
